FAERS Safety Report 23613960 (Version 1)
Quarter: 2024Q1

REPORT INFORMATION
  Report Type: Spontaneous
  Country: FR (occurrence: FR)
  Receive Date: 20240310
  Receipt Date: 20240310
  Transmission Date: 20240410
  Serious: Yes (Hospitalization)
  Sender: FDA-Public Use
  Company Number: None

PATIENT
  Age: 31 Year
  Sex: Male
  Weight: 91 kg

DRUGS (2)
  1. ACETAMINOPHEN [Suspect]
     Active Substance: ACETAMINOPHEN
     Indication: Pain
     Dosage: 3.000G QD
     Route: 048
     Dates: start: 20240121, end: 20240124
  2. PERINDOPRIL [Suspect]
     Active Substance: PERINDOPRIL
     Indication: Hypertension
     Dosage: 2.000MG QD
     Route: 048
     Dates: start: 202401, end: 20240121

REACTIONS (1)
  - Glucose-6-phosphate dehydrogenase deficiency [Recovered/Resolved]

NARRATIVE: CASE EVENT DATE: 20240122
